FAERS Safety Report 25788753 (Version 1)
Quarter: 2025Q3

REPORT INFORMATION
  Report Type: Spontaneous
  Country: US (occurrence: US)
  Receive Date: 20250910
  Receipt Date: 20250910
  Transmission Date: 20251021
  Serious: No
  Sender: SANDOZ
  Company Number: US-SANDOZ-SDZ2025US064658

PATIENT
  Sex: Female

DRUGS (2)
  1. CAPLACIZUMAB [Suspect]
     Active Substance: CAPLACIZUMAB
     Indication: Thrombotic microangiopathy
     Dosage: 11 MG, QD
     Route: 058
     Dates: start: 202101
  2. TACROLIMUS [Suspect]
     Active Substance: TACROLIMUS
     Indication: Product used for unknown indication
     Route: 065
     Dates: start: 2025

REACTIONS (12)
  - Heavy menstrual bleeding [Unknown]
  - Menstruation irregular [Unknown]
  - Injection site pain [Unknown]
  - Gingival pain [Unknown]
  - Gingival bleeding [Unknown]
  - Paraesthesia [Unknown]
  - Hypoaesthesia [Unknown]
  - Vasoconstriction [Unknown]
  - Muscle spasms [Unknown]
  - Feeling hot [Unknown]
  - ADAMTS13 activity decreased [Unknown]
  - Fatigue [Unknown]

NARRATIVE: CASE EVENT DATE: 20250101
